FAERS Safety Report 9677455 (Version 1)
Quarter: 2013Q4

REPORT INFORMATION
  Report Type: Spontaneous
  Country: US (occurrence: None)
  Receive Date: 20131107
  Receipt Date: 20131107
  Transmission Date: 20140711
  Serious: Yes (Life-Threatening, Hospitalization, Disabling, Other)
  Sender: FDA-Public Use
  Company Number: None

PATIENT
  Age: 17 Month
  Sex: Female
  Weight: 9.53 kg

DRUGS (4)
  1. EPI PEN [Suspect]
     Indication: FOOD ALLERGY
     Dosage: 2 SHOTS, INTO THE MUSCLE
  2. EPI PEN [Suspect]
     Indication: FOOD ALLERGY
     Dosage: 2 SHOTS, INTO THE MUSCLE
  3. EPI PEN [Suspect]
     Indication: COW^S MILK INTOLERANCE
     Dosage: 2 SHOTS, INTO THE MUSCLE
  4. EPI PEN [Suspect]
     Indication: FOOD ALLERGY
     Dosage: 2 SHOTS, INTO THE MUSCLE

REACTIONS (4)
  - Anaphylactic shock [None]
  - Skin discolouration [None]
  - Disturbance in attention [None]
  - Unresponsive to stimuli [None]
